FAERS Safety Report 5450480-8 (Version None)
Quarter: 2007Q3

REPORT INFORMATION
  Report Type: 
  Country: None (occurrence: None)
  Receive Date: 20070912
  Receipt Date: 20070904
  Transmission Date: 20080115
  Serious: No
  Sender: FDA-Public Use
  Company Number: US-BOEHRINGER INGELHEIM PHARMACEUTICALS, INC.-2007-BP-18882BP

PATIENT
  Sex: Female

DRUGS (3)
  1. COMBIVENT [Suspect]
     Route: 055
     Dates: start: 20040601
  2. LEXAPRO [Concomitant]
  3. DUONEB [Concomitant]

REACTIONS (1)
  - DRUG INEFFECTIVE [None]
